FAERS Safety Report 10906237 (Version 9)
Quarter: 2017Q1

REPORT INFORMATION
  Report Type: Report from Study
  Country: US (occurrence: US)
  Receive Date: 20150311
  Receipt Date: 20170124
  Transmission Date: 20170428
  Serious: Yes (Death, Life-Threatening, Hospitalization, Other)
  Sender: FDA-Public Use
  Company Number: US-OTSUKA-US-2015-11097

PATIENT
  Age: 47 Year
  Sex: Male

DRUGS (2)
  1. ARIPIPRAZOLE. [Suspect]
     Active Substance: ARIPIPRAZOLE
     Indication: SCHIZOPHRENIA
     Dosage: 400 MG, QM
     Route: 065
     Dates: end: 20150313
  2. OPC-14597 [Suspect]
     Active Substance: CILOSTAZOL
     Indication: PRODUCT USED FOR UNKNOWN INDICATION
     Dosage: 400 MG, UNK
     Route: 030

REACTIONS (5)
  - Hepatic failure [Fatal]
  - Fluid overload [Unknown]
  - Life support [Unknown]
  - Diabetes mellitus [Unknown]
  - Renal failure [Unknown]

NARRATIVE: CASE EVENT DATE: 20150228
